FAERS Safety Report 4969068-8 (Version None)
Quarter: 2006Q2

REPORT INFORMATION
  Report Type: 
  Country: None (occurrence: None)
  Receive Date: 20060411
  Receipt Date: 20060330
  Transmission Date: 20061013
  Serious: Yes (Hospitalization)
  Sender: FDA-Public Use
  Company Number: FR-BRISTOL-MYERS SQUIBB COMPANY-13335898

PATIENT
  Age: 70 Year
  Sex: Female
  Weight: 65 kg

DRUGS (4)
  1. GLUCOPHAGE [Suspect]
     Indication: DIABETES MELLITUS NON-INSULIN-DEPENDENT
     Route: 048
     Dates: end: 20060120
  2. APROVEL [Interacting]
     Indication: HYPERTENSION
     Route: 048
  3. XENETIX [Interacting]
     Indication: COMPUTERISED TOMOGRAM
     Route: 042
     Dates: start: 20060116, end: 20060116
  4. DIAMICRON [Interacting]
     Indication: DIABETES MELLITUS
     Route: 048

REACTIONS (4)
  - BLOOD CREATINE INCREASED [None]
  - DRUG INTERACTION [None]
  - INTENTIONAL DRUG MISUSE [None]
  - RENAL FAILURE ACUTE [None]
